FAERS Safety Report 6754121-9 (Version None)
Quarter: 2010Q2

REPORT INFORMATION
  Report Type: 
  Country: None (occurrence: None)
  Receive Date: 20100603
  Receipt Date: 20100527
  Transmission Date: 20101027
  Serious: Yes (Death)
  Sender: FDA-Public Use
  Company Number: JP-SANOFI-AVENTIS-2010SA031324

PATIENT
  Sex: Male
  Weight: 67 kg

DRUGS (3)
  1. PLAVIX [Suspect]
     Indication: ISCHAEMIC CEREBRAL INFARCTION
     Route: 048
     Dates: start: 20070822, end: 20071201
  2. AMLODIPINE BESYLATE [Concomitant]
     Route: 048
  3. ALLOPURINOL [Concomitant]
     Route: 048

REACTIONS (1)
  - DEATH [None]
